FAERS Safety Report 4897495-6 (Version None)
Quarter: 2006Q1

REPORT INFORMATION
  Report Type: 
  Country: None (occurrence: None)
  Receive Date: 20060201
  Receipt Date: 20051228
  Transmission Date: 20060701
  Serious: Yes (Hospitalization, Other)
  Sender: FDA-Public Use
  Company Number: JP-BRISTOL-MYERS SQUIBB COMPANY-13230529

PATIENT
  Age: 72 Year
  Sex: Male
  Weight: 60 kg

DRUGS (2)
  1. CETUXIMAB [Suspect]
     Indication: COLORECTAL CANCER
     Route: 042
     Dates: start: 20051226, end: 20051226
  2. IRINOTECAN HCL [Suspect]
     Route: 042
     Dates: start: 20051212, end: 20051226

REACTIONS (2)
  - HAEMATEMESIS [None]
  - WHITE BLOOD CELL COUNT DECREASED [None]
